FAERS Safety Report 11895092 (Version 4)
Quarter: 2016Q2

REPORT INFORMATION
  Report Type: Spontaneous
  Country: US (occurrence: US)
  Receive Date: 20160107
  Receipt Date: 20160617
  Transmission Date: 20160815
  Serious: Yes (Other)
  Sender: FDA-Public Use
  Company Number: US-PFIZER INC-2015441800

PATIENT
  Age: 70 Year
  Sex: Male
  Weight: 69 kg

DRUGS (3)
  1. SUTENT [Suspect]
     Active Substance: SUNITINIB MALATE
     Dosage: UNK
  2. SUTENT [Suspect]
     Active Substance: SUNITINIB MALATE
     Dosage: 37.5 MG, DAY 1-28 Q 28 DAYS
     Route: 048
     Dates: end: 201605
  3. SUTENT [Suspect]
     Active Substance: SUNITINIB MALATE
     Indication: RENAL CANCER
     Dosage: 50 MG, CYCLIC (D1-D28 Q 42 DAYS)
     Route: 048
     Dates: start: 20151127, end: 20160429

REACTIONS (13)
  - Fatigue [Unknown]
  - Amnesia [Unknown]
  - Dry skin [Unknown]
  - Decreased appetite [Unknown]
  - Oral mucosal blistering [Unknown]
  - Stomatitis [Unknown]
  - Anxiety [Unknown]
  - Erythema [Unknown]
  - Pain [Unknown]
  - Platelet count decreased [Unknown]
  - Agitation [Unknown]
  - Pain in extremity [Unknown]
  - Skin discolouration [Unknown]

NARRATIVE: CASE EVENT DATE: 20151210
